FAERS Safety Report 25888448 (Version 1)
Quarter: 2025Q4

REPORT INFORMATION
  Report Type: Spontaneous
  Country: CN (occurrence: CN)
  Receive Date: 20251007
  Receipt Date: 20251007
  Transmission Date: 20260118
  Serious: Yes (Other)
  Sender: BAXTER
  Company Number: None

PATIENT
  Age: 5 Year
  Sex: Male
  Weight: 17 kg

DRUGS (1)
  1. CYCLOPHOSPHAMIDE [Suspect]
     Active Substance: CYCLOPHOSPHAMIDE
     Indication: Nephrotic syndrome
     Dosage: 707 MG, QD (HIGH DOSE PULSE THERAPY)
     Route: 041
     Dates: start: 20250921, end: 20250921

REACTIONS (1)
  - Hypokalaemia [Recovering/Resolving]

NARRATIVE: CASE EVENT DATE: 20250921
